FAERS Safety Report 7578842-3 (Version None)
Quarter: 2011Q2

REPORT INFORMATION
  Report Type: 
  Country: None (occurrence: None)
  Receive Date: 20110628
  Receipt Date: 20110621
  Transmission Date: 20111010
  Serious: Yes (Other)
  Sender: FDA-Public Use
  Company Number: CA-PFIZER INC-2011085263

PATIENT
  Age: 64 Year
  Sex: Male
  Weight: 97.506 kg

DRUGS (8)
  1. AVALIDE [Concomitant]
     Indication: HYPERTENSION
     Dosage: 12.5 MG, 1X/DAY
  2. VITAMIN D [Concomitant]
     Dosage: 1 DF, 1X/DAY
  3. ASCORBIC ACID [Concomitant]
     Dosage: 1 DF, 1X/DAY
  4. ALLOPURINOL [Concomitant]
     Indication: GOUT
     Dosage: 50 MG, 2X/DAY
  5. NORVASC [Concomitant]
     Indication: HYPERTENSION
     Dosage: 5 MG, 2X/DAY
  6. SUTENT [Suspect]
     Indication: RENAL CELL CARCINOMA
     Dosage: UNK
     Dates: start: 20060401
  7. BISOPROLOL [Concomitant]
     Indication: HYPERTENSION
     Dosage: 5 MG, 1X/DAY
  8. OMEPRAZOLE [Concomitant]
     Indication: DYSPEPSIA
     Dosage: 20 MG, 1X/DAY

REACTIONS (3)
  - NAUSEA [None]
  - BLOOD TRIGLYCERIDES INCREASED [None]
  - PANCREATITIS [None]
